FAERS Safety Report 5029272-X (Version None)
Quarter: 2006Q2

REPORT INFORMATION
  Report Type: 
  Country: None (occurrence: None)
  Receive Date: 20060619
  Receipt Date: 20060530
  Transmission Date: 20061013
  Serious: Yes (Congenital Anomaly)
  Sender: FDA-Public Use
  Company Number: DE-BOEHRINGER INGELHEIM PHARMACEUTICALS, INC.-2006-BP-06353BP

PATIENT
  Sex: Male
  Weight: 2.825 kg

DRUGS (5)
  1. VIRAMUNE [Suspect]
     Indication: HIV INFECTION
     Route: 015
     Dates: end: 20050819
  2. VIRAMUNE [Suspect]
     Route: 015
     Dates: start: 20050930
  3. COMBIVIR [Concomitant]
     Indication: HIV INFECTION
     Route: 015
     Dates: end: 20050812
  4. COMBIVIR [Concomitant]
     Route: 015
     Dates: start: 20050930
  5. ZIDOVUDINE [Concomitant]
     Indication: HIV INFECTION
     Route: 015
     Dates: start: 20060302

REACTIONS (2)
  - DRUG EXPOSURE DURING PREGNANCY [None]
  - EXOMPHALOS [None]
